FAERS Safety Report 22093896 (Version 1)
Quarter: 2023Q1

REPORT INFORMATION
  Report Type: Report from Study
  Country: US (occurrence: US)
  Receive Date: 20230314
  Receipt Date: 20230314
  Transmission Date: 20230418
  Serious: Yes (Other)
  Sender: FDA-Public Use
  Company Number: US-002147023-NVSC2023US053507

PATIENT
  Age: 63 Year

DRUGS (1)
  1. KESIMPTA [Suspect]
     Active Substance: OFATUMUMAB
     Indication: Multiple sclerosis
     Dosage: 0.04 MG, QMO
     Route: 058
     Dates: start: 20220720

REACTIONS (4)
  - Multiple sclerosis relapse [Unknown]
  - Muscular weakness [Unknown]
  - Lethargy [Unknown]
  - Memory impairment [Unknown]
